FAERS Safety Report 9156341 (Version 2)
Quarter: 2013Q3

REPORT INFORMATION
  Report Type: Spontaneous
  Country: US (occurrence: US)
  Receive Date: 20130312
  Receipt Date: 20130801
  Transmission Date: 20140515
  Serious: No
  Sender: FDA-Public Use
  Company Number: US-009507513-1303USA004343

PATIENT
  Age: 23 Year
  Sex: Female
  Weight: 78.46 kg

DRUGS (1)
  1. IMPLANON [Suspect]
     Indication: CONTRACEPTION
     Dosage: 1 DF, UNK
     Route: 059
     Dates: start: 20130220

REACTIONS (4)
  - Implant site bruising [Unknown]
  - Implant site infection [Unknown]
  - Implant site hypersensitivity [Not Recovered/Not Resolved]
  - Complication of device insertion [Not Recovered/Not Resolved]
